FAERS Safety Report 6285836 (Version 4)
Quarter: 2017Q3

REPORT INFORMATION
  Report Type: Spontaneous
  Country: US (occurrence: US)
  Receive Date: 20061031
  Receipt Date: 20170925
  Transmission Date: 20171128
  Serious: Yes (Hospitalization, Other)
  Sender: FDA-Public Use
  Company Number: US-PFIZER INC-2006130255

PATIENT
  Sex: Female

DRUGS (2)
  1. VIOXX [Suspect]
     Active Substance: ROFECOXIB
     Dosage: UNK
     Route: 048
     Dates: start: 19991001, end: 200008
  2. CELEBREX [Suspect]
     Active Substance: CELECOXIB
     Indication: PAIN MANAGEMENT
     Dosage: 200 MG, 1X/DAY
     Route: 048
     Dates: start: 19990612, end: 19991021

REACTIONS (3)
  - Depression [Unknown]
  - Ischaemic stroke [Unknown]
  - Anxiety [Unknown]

NARRATIVE: CASE EVENT DATE: 20000807
